FAERS Safety Report 6618703-7 (Version None)
Quarter: 2010Q1

REPORT INFORMATION
  Report Type: 
  Country: None (occurrence: None)
  Receive Date: 20100305
  Receipt Date: 20100305
  Transmission Date: 20100710
  Serious: Yes (Disabling, Other)
  Sender: FDA-Public Use
  Company Number: None

PATIENT
  Age: 27 Year
  Sex: Male
  Weight: 65.7716 kg

DRUGS (1)
  1. PRILOSEC [Suspect]
     Indication: GASTROOESOPHAGEAL REFLUX DISEASE
     Dosage: 20.6 MG 2 DAILY
     Dates: start: 20091123, end: 20100204

REACTIONS (8)
  - ABDOMINAL PAIN UPPER [None]
  - HEADACHE [None]
  - HYPOAESTHESIA [None]
  - MIGRAINE WITH AURA [None]
  - PHOTOPHOBIA [None]
  - TINNITUS [None]
  - VISION BLURRED [None]
  - VITREOUS FLOATERS [None]
